FAERS Safety Report 4353212-X (Version None)
Quarter: 2004Q2

REPORT INFORMATION
  Report Type: 
  Country: None (occurrence: None)
  Receive Date: 20040503
  Receipt Date: 20040503
  Transmission Date: 20050107
  Serious: No
  Sender: FDA-Public Use
  Company Number: None

PATIENT
  Age: 69 Year

DRUGS (8)
  1. LISINOPRIL [Suspect]
     Indication: HYPERTENSION
     Dosage: 7.5 QD [INCREASED ONE MONTH AGO]
  2. NAPROXEN [Suspect]
     Indication: PAIN
     Dosage: OTC 2-3 TIMES A DAY
  3. AMOXICILLIN [Concomitant]
  4. GEMFIBROZIL [Concomitant]
  5. GLIPIZIDE [Concomitant]
  6. DIGOXIN [Concomitant]
  7. SIMVASTATIN [Concomitant]
  8. LASIX [Concomitant]

REACTIONS (2)
  - HYPERKALAEMIA [None]
  - RENAL FAILURE ACUTE [None]
